FAERS Safety Report 10722371 (Version 2)
Quarter: 2015Q1

REPORT INFORMATION
  Report Type: Spontaneous
  Country: US (occurrence: US)
  Receive Date: 20150120
  Receipt Date: 20150122
  Transmission Date: 20150721
  Serious: No
  Sender: FDA-Public Use
  Company Number: US-009507513-1501USA005701

PATIENT
  Age: 71 Year
  Sex: Male

DRUGS (2)
  1. JANUMET [Suspect]
     Active Substance: METFORMIN HYDROCHLORIDE\SITAGLIPTIN PHOSPHATE
     Dosage: UNK
     Route: 048
  2. JANUMET [Suspect]
     Active Substance: METFORMIN HYDROCHLORIDE\SITAGLIPTIN PHOSPHATE
     Indication: DIABETES MELLITUS
     Dosage: 1 TABLET, EVERY DAY
     Route: 048
     Dates: start: 201301

REACTIONS (9)
  - Skin fissures [Unknown]
  - Constipation [Unknown]
  - Blood glucose fluctuation [Unknown]
  - Drug ineffective [Unknown]
  - Feeling abnormal [Unknown]
  - Gait disturbance [Unknown]
  - Pain of skin [Unknown]
  - Malaise [Unknown]
  - Dry skin [Unknown]

NARRATIVE: CASE EVENT DATE: 2013
